FAERS Safety Report 24096021 (Version 1)
Quarter: 2024Q3

REPORT INFORMATION
  Report Type: Spontaneous
  Country: US (occurrence: US)
  Receive Date: 20240716
  Receipt Date: 20240716
  Transmission Date: 20241017
  Serious: No
  Sender: SANOFI AVENTIS
  Company Number: US-SANOFI-02129063

PATIENT
  Age: 60 Year
  Sex: Female

DRUGS (1)
  1. DUPIXENT [Suspect]
     Active Substance: DUPILUMAB
     Indication: Dermatitis atopic
     Dosage: 300 MG

REACTIONS (9)
  - Dyspnoea [Unknown]
  - Cellulitis [Unknown]
  - Productive cough [Unknown]
  - Sneezing [Unknown]
  - Pain [Unknown]
  - Joint swelling [Unknown]
  - Pyrexia [Recovered/Resolved]
  - Blood pressure decreased [Unknown]
  - Injection site rash [Unknown]

NARRATIVE: CASE EVENT DATE: 20240415
